FAERS Safety Report 5513473-8 (Version None)
Quarter: 2007Q4

REPORT INFORMATION
  Report Type: 
  Country: None (occurrence: None)
  Receive Date: 20071112
  Receipt Date: 20071029
  Transmission Date: 20080405
  Serious: Yes (Other)
  Sender: FDA-Public Use
  Company Number: GB-AMGEN-UK251276

PATIENT
  Sex: Male

DRUGS (10)
  1. ARANESP [Suspect]
     Indication: PRE-EXISTING DISEASE
     Dates: start: 20070401
  2. FUROSEMIDE [Concomitant]
  3. METAXALONE [Concomitant]
  4. ASPIRIN [Concomitant]
  5. SIMVASTATIN [Concomitant]
  6. GLICLAZIDE [Concomitant]
  7. AMIODARONE HCL [Concomitant]
  8. LEVOTHYROXINE SODIUM [Concomitant]
  9. PIOGLITAZONE [Concomitant]
  10. RAMIPRIL [Concomitant]

REACTIONS (1)
  - BLOOD GLUCOSE INCREASED [None]
